FAERS Safety Report 8605924-7 (Version None)
Quarter: 2012Q3

REPORT INFORMATION
  Report Type: 
  Country: None (occurrence: None)
  Receive Date: 20120809
  Receipt Date: 20120809
  Transmission Date: 20120928
  Serious: Yes (Life-Threatening, Hospitalization)
  Sender: FDA-Public Use
  Company Number: None

PATIENT
  Age: 61 Year
  Sex: Male
  Weight: 80.4 kg

DRUGS (1)
  1. CLONIDINE [Suspect]
     Dosage: 0.05 MG TID PO
     Route: 048
     Dates: start: 20120306, end: 20120508

REACTIONS (2)
  - HYPOTENSION [None]
  - BRADYCARDIA [None]
